FAERS Safety Report 15300417 (Version 1)
Quarter: 2018Q4

REPORT INFORMATION
  Report Type: Spontaneous
  Country: IN (occurrence: IN)
  Receive Date: 20180821
  Receipt Date: 20180821
  Transmission Date: 20190204
  Serious: Yes (Hospitalization)
  Sender: FDA-Public Use
  Company Number: IN-ACELLA PHARMACEUTICALS, LLC-2053998

PATIENT
  Age: 24 Month
  Sex: Male

DRUGS (1)
  1. PHENYTOIN SODIUM. [Suspect]
     Active Substance: PHENYTOIN SODIUM
     Indication: TOXICITY TO VARIOUS AGENTS

REACTIONS (7)
  - Dyskinesia [Recovered/Resolved]
  - Ataxia [Recovered/Resolved]
  - Pyrexia [Recovered/Resolved]
  - Chorea [Recovered/Resolved]
  - Electroencephalogram abnormal [Recovered/Resolved]
  - Depressed level of consciousness [Recovered/Resolved]
  - Hyporeflexia [Recovered/Resolved]
